FAERS Safety Report 17031683 (Version 1)
Quarter: 2019Q4

REPORT INFORMATION
  Report Type: Spontaneous
  Country: US (occurrence: US)
  Receive Date: 20191113
  Receipt Date: 20191113
  Transmission Date: 20200122
  Serious: Yes (Other)
  Sender: FDA-Public Use
  Company Number: None

PATIENT
  Age: 65 Year
  Sex: Female
  Weight: 78 kg

DRUGS (1)
  1. REMICADE [Suspect]
     Active Substance: INFLIXIMAB
     Dates: start: 20191113

REACTIONS (5)
  - Urticaria [None]
  - Erythema [None]
  - Pruritus [None]
  - Nasal congestion [None]
  - Infusion related reaction [None]

NARRATIVE: CASE EVENT DATE: 20191113
